FAERS Safety Report 8143499-X (Version None)
Quarter: 2012Q1

REPORT INFORMATION
  Report Type: 
  Country: None (occurrence: None)
  Receive Date: 20120217
  Receipt Date: 20120213
  Transmission Date: 20120608
  Serious: Yes (Death, Hospitalization)
  Sender: FDA-Public Use
  Company Number: DE-BRISTOL-MYERS SQUIBB COMPANY-16312225

PATIENT
  Age: 66 Year
  Sex: Female
  Weight: 75 kg

DRUGS (9)
  1. PRAVASTATIN [Concomitant]
  2. METOPROLOL TARTRATE [Concomitant]
     Dates: start: 20101212
  3. FLUCONAZOLE [Concomitant]
     Dates: start: 20110125
  4. PEMETREXED DISODIUM [Suspect]
     Indication: NON-SMALL CELL LUNG CANCER
     Route: 065
     Dates: start: 20101202, end: 20101202
  5. LIQUAEMIN INJ [Concomitant]
     Dates: start: 20101228
  6. CISPLATIN [Suspect]
     Indication: NON-SMALL CELL LUNG CANCER
     Route: 065
     Dates: start: 20101202, end: 20101202
  7. ACETYLSALICYLIC ACID SRT [Concomitant]
     Dates: start: 20090831
  8. RAMIPRIL [Concomitant]
  9. BISOPROLOL FUMARATE [Concomitant]

REACTIONS (1)
  - RENAL FAILURE [None]
